FAERS Safety Report 14987431 (Version 3)
Quarter: 2019Q1

REPORT INFORMATION
  Report Type: Report from Study
  Country: DK (occurrence: DK)
  Receive Date: 20180608
  Receipt Date: 20190327
  Transmission Date: 20190417
  Serious: Yes (Death)
  Sender: FDA-Public Use
  Company Number: DK-ROCHE-2134679

PATIENT
  Age: 70 Year
  Sex: Male
  Weight: 78.9 kg

DRUGS (8)
  1. HYDROCHLOROTHIAZIDE/LOSARTAN [Concomitant]
     Active Substance: HYDROCHLOROTHIAZIDE\LOSARTAN
     Dosage: DOSE: 100 MG + 25 MG
     Route: 048
     Dates: start: 20131021
  2. ACETYLSALICYLSYRE [Concomitant]
     Active Substance: ASPIRIN
     Route: 048
     Dates: start: 20170824
  3. OBINUTUZUMAB. [Suspect]
     Active Substance: OBINUTUZUMAB
     Indication: CHRONIC LYMPHOCYTIC LEUKAEMIA
     Dosage: DOSE: 100 MG ON DAY 1; 900 MG ON DAY 1(2); 1000 MG DAY 8+15 ONCE IN A 28 DAY (AS PER PROTOCOL)?LAST
     Route: 042
     Dates: start: 20170201
  4. IBRUTINIB [Suspect]
     Active Substance: IBRUTINIB
     Indication: CHRONIC LYMPHOCYTIC LEUKAEMIA
     Dosage: DOSE: 420 MG, DAY 1-28 ONCE IN A 28 DAY (AS PER PROTOCOL)?LAST DOSE OF IBRUTINIB WAS GIVEN ON 16/JAN
     Route: 048
     Dates: start: 20170201
  5. TRAMADOL. [Concomitant]
     Active Substance: TRAMADOL
     Route: 048
     Dates: start: 20180417
  6. PROPRANOLOL [Concomitant]
     Active Substance: PROPRANOLOL HYDROCHLORIDE
     Route: 048
     Dates: start: 20170710
  7. ALENDRONAT [Concomitant]
     Active Substance: ALENDRONATE SODIUM
     Route: 048
     Dates: start: 20170911
  8. VENETOCLAX. [Suspect]
     Active Substance: VENETOCLAX
     Indication: CHRONIC LYMPHOCYTIC LEUKAEMIA
     Dosage: DOSE: 20 MG (2 TABLETS AT 10 MG) DAY  22-28, ONCE IN A 28 DAYS (AS PER PROTOCOL)?LAST DOSE OF VENETO
     Route: 048
     Dates: start: 20170222

REACTIONS (1)
  - Small cell lung cancer [Fatal]

NARRATIVE: CASE EVENT DATE: 20180528
